FAERS Safety Report 8651768 (Version 4)
Quarter: 2012Q4

REPORT INFORMATION
  Report Type: Report from Study
  Country: US (occurrence: US)
  Receive Date: 20120706
  Receipt Date: 20121015
  Transmission Date: 20130627
  Serious: Yes (Hospitalization, Other)
  Sender: FDA-Public Use
  Company Number: US-JNJFOC-20120614104

PATIENT
  Age: 75 Year
  Sex: Male
  Weight: 73.03 kg

DRUGS (24)
  1. REMICADE [Suspect]
     Indication: RHEUMATOID ARTHRITIS
     Route: 042
  2. REMICADE [Suspect]
     Indication: RHEUMATOID ARTHRITIS
     Route: 042
     Dates: start: 20120725
  3. REMICADE [Suspect]
     Indication: RHEUMATOID ARTHRITIS
     Route: 042
     Dates: start: 20120613
  4. REMICADE [Suspect]
     Indication: RHEUMATOID ARTHRITIS
     Route: 042
     Dates: start: 20120905
  5. SOLU-MEDROL [Concomitant]
     Indication: PREMEDICATION
     Route: 042
  6. BENADRYL [Concomitant]
     Indication: PREMEDICATION
     Route: 042
     Dates: start: 20120725
  7. BENADRYL [Concomitant]
     Indication: PREMEDICATION
     Route: 042
     Dates: start: 20120613
  8. BENADRYL [Concomitant]
     Indication: PREMEDICATION
     Route: 042
  9. SIMVASTATIN [Concomitant]
     Route: 048
  10. HYDRALAZINE HYDROCHLORIDE [Concomitant]
     Dosage: 1.5 in one day
     Route: 048
  11. VICODIN [Concomitant]
     Dosage: 5-500mg
     Route: 048
  12. SULINDAC [Concomitant]
     Route: 048
  13. MULTIPLE VITAMIN [Concomitant]
     Route: 048
  14. ATENOLOL [Concomitant]
     Route: 048
  15. OMEPRAZOLE [Concomitant]
     Route: 048
  16. AMILORIDE [Concomitant]
     Route: 048
  17. LEVOBUNOLOL HYDROCHLORIDE [Concomitant]
     Route: 047
  18. ASPIRIN [Concomitant]
     Route: 048
  19. FISH OIL [Concomitant]
     Route: 048
  20. TYLENOL EXTRA STRENGTH [Concomitant]
     Route: 048
  21. VIAGRA [Concomitant]
     Route: 048
  22. METHYLPREDNISOLONE [Concomitant]
     Route: 048
  23. HYDROCORTISONE SODIUM SUCCINATE [Concomitant]
     Indication: PREMEDICATION
     Route: 065
     Dates: start: 20120725
  24. METHYLPREDNISOLONE [Concomitant]
     Indication: PREMEDICATION
     Route: 065
     Dates: start: 20120613

REACTIONS (3)
  - Tendon rupture [Not Recovered/Not Resolved]
  - Pyrexia [Recovering/Resolving]
  - Pain [Recovering/Resolving]
